FAERS Safety Report 26201611 (Version 1)
Quarter: 2025Q4

REPORT INFORMATION
  Report Type: Spontaneous
  Country: GB (occurrence: GB)
  Receive Date: 20251226
  Receipt Date: 20251226
  Transmission Date: 20260118
  Serious: Yes (Other)
  Sender: MICRO LABS LIMITED
  Company Number: None

PATIENT
  Age: 83 Year
  Sex: Female

DRUGS (3)
  1. IRBESARTAN [Suspect]
     Active Substance: IRBESARTAN
     Indication: Product used for unknown indication
  2. APIXABAN [Suspect]
     Active Substance: APIXABAN
     Indication: Product used for unknown indication
  3. SOTALOL [Suspect]
     Active Substance: SOTALOL
     Indication: Product used for unknown indication

REACTIONS (2)
  - Contusion [Recovering/Resolving]
  - Fall [Unknown]

NARRATIVE: CASE EVENT DATE: 20251118
